FAERS Safety Report 25182496 (Version 1)
Quarter: 2025Q2

REPORT INFORMATION
  Report Type: Report from Study
  Country: US (occurrence: US)
  Receive Date: 20250410
  Receipt Date: 20250410
  Transmission Date: 20250716
  Serious: Yes (Other)
  Sender: ACADIA PHARMACEUTICALS
  Company Number: US-ACADIA PHARMACEUTICALS INC.-ACA-2025-PIM-003855

PATIENT
  Sex: Female

DRUGS (12)
  1. NUPLAZID [Suspect]
     Active Substance: PIMAVANSERIN TARTRATE
     Indication: Parkinson^s disease
     Dosage: 34 MILLIGRAM, QD
     Route: 048
     Dates: start: 20241003
  2. BUPROPION HYDROCHLORIDE XL [Concomitant]
     Active Substance: BUPROPION HYDROCHLORIDE
  3. CARBIDOPA\LEVODOPA [Concomitant]
     Active Substance: CARBIDOPA\LEVODOPA
  4. DULOXETINE [Concomitant]
     Active Substance: DULOXETINE
  5. ELESTRIN [Concomitant]
     Active Substance: ESTRADIOL
  6. GABAPENTIN [Concomitant]
     Active Substance: GABAPENTIN
  7. GEMTESA [Concomitant]
     Active Substance: VIBEGRON
  8. METOPROLOL [Concomitant]
     Active Substance: METOPROLOL
  9. OMEPRAZOLE [Concomitant]
     Active Substance: OMEPRAZOLE
  10. PROGESTERONE [Concomitant]
     Active Substance: PROGESTERONE
  11. QUETIAPINE [Concomitant]
     Active Substance: QUETIAPINE
  12. TRAZODONE [Concomitant]
     Active Substance: TRAZODONE HYDROCHLORIDE

REACTIONS (2)
  - Hallucination, visual [Unknown]
  - Product use complaint [Unknown]
